FAERS Safety Report 17823890 (Version 1)
Quarter: 2020Q2

REPORT INFORMATION
  Report Type: Spontaneous
  Country: BR (occurrence: BR)
  Receive Date: 20200526
  Receipt Date: 20200526
  Transmission Date: 20200714
  Serious: Yes (Other)
  Sender: FDA-Public Use
  Company Number: BR-TORRENT-00005347

PATIENT
  Age: 31 Year
  Sex: Female

DRUGS (4)
  1. KETOROLAC [Concomitant]
     Active Substance: KETOROLAC TROMETHAMINE
     Indication: ABDOMINAL PAIN
     Dosage: ABOUT 6 OR 7 YRS AGO (2013 OR 2014) 1 TAB IN PAIN
     Route: 060
  2. ZYRTEC [Concomitant]
     Active Substance: CETIRIZINE HYDROCHLORIDE
     Indication: HYPERSENSITIVITY
     Dosage: 1 TAB DURING CRISES ABOUT 5 YEARS AGO
     Route: 048
     Dates: start: 2005
  3. NEBLOCK [Suspect]
     Active Substance: NEBIVOLOL HYDROCHLORIDE
     Indication: CARDIAC DISORDER
     Dosage: ONE TABLET DAILY
     Route: 065
     Dates: start: 20200508
  4. OLMECOR [Suspect]
     Active Substance: OLMESARTAN MEDOXOMIL
     Indication: CARDIAC DISORDER
     Dosage: 1 TABLET DAILY, ABOUT 1 AND HALF YEARS
     Route: 048
     Dates: start: 2019

REACTIONS (5)
  - Movement disorder [Recovered/Resolved]
  - Angina pectoris [Not Recovered/Not Resolved]
  - Blood pressure decreased [Recovered/Resolved]
  - Heart rate decreased [Recovered/Resolved]
  - Syncope [Recovered/Resolved]

NARRATIVE: CASE EVENT DATE: 20200511
